FAERS Safety Report 7951863-4 (Version None)
Quarter: 2011Q4

REPORT INFORMATION
  Report Type: 
  Country: None (occurrence: None)
  Receive Date: 20111201
  Receipt Date: 20111201
  Transmission Date: 20120403
  Serious: Yes (Hospitalization)
  Sender: FDA-Public Use
  Company Number: None

PATIENT
  Sex: Female
  Weight: 64.9 kg

DRUGS (10)
  1. VERAPAMIL EXTENDED-RELEASE [Concomitant]
  2. FERROUS SULFATE TAB [Concomitant]
  3. DIGOXIN [Concomitant]
  4. ALBUTEROL [Concomitant]
  5. PANTOPRAZOLE [Concomitant]
  6. FUROSEMIDE [Concomitant]
  7. ALLOPURINOL [Concomitant]
  8. SPIRONOLACTONE [Concomitant]
  9. PRADAXA [Suspect]
     Indication: ATRIAL FIBRILLATION
     Dosage: UNKNOWN
     Route: 048
  10. CIPROFLOXACIN [Concomitant]

REACTIONS (2)
  - ANAEMIA [None]
  - GASTROINTESTINAL HAEMORRHAGE [None]
